FAERS Safety Report 24760806 (Version 1)
Quarter: 2024Q4

REPORT INFORMATION
  Report Type: Spontaneous
  Country: US (occurrence: None)
  Receive Date: 20241220
  Receipt Date: 20241220
  Transmission Date: 20250115
  Serious: Yes (Death)
  Sender: Public
  Company Number: None

PATIENT
  Sex: Male

DRUGS (11)
  1. MAYZENT [Suspect]
     Active Substance: SIPONIMOD
     Indication: Multiple sclerosis
     Dates: start: 20191004
  2. BACLOFEN [Concomitant]
     Active Substance: BACLOFEN
  3. BACLOFEN TAB 20MG [Concomitant]
  4. BUPROPION [Concomitant]
     Active Substance: BUPROPION
  5. CALCIFEROL DRO 8000/ML [Concomitant]
  6. CITALOPRAM SOL 10MG/5ML [Concomitant]
  7. CITALOPRAM TAB 40MG [Concomitant]
  8. DANTROLENE CAP 25MG [Concomitant]
  9. ENOXAPARIN INJ 40/0.4ML [Concomitant]
  10. GNP VIT D TAB 5000UNIT [Concomitant]
  11. LORAZEPAM TAB0.5MG [Concomitant]

REACTIONS (1)
  - Death [None]
